FAERS Safety Report 7761439-X (Version None)
Quarter: 2011Q3

REPORT INFORMATION
  Report Type: 
  Country: None (occurrence: None)
  Receive Date: 20110920
  Receipt Date: 20110830
  Transmission Date: 20111222
  Serious: No
  Sender: FDA-Public Use
  Company Number: US-JNJFOC-20110802112

PATIENT
  Sex: Male
  Weight: 62.14 kg

DRUGS (5)
  1. DEPAKOTE [Concomitant]
     Route: 065
  2. INVEGA SUSTENNA [Suspect]
     Indication: SCHIZOPHRENIA
     Route: 030
     Dates: start: 20110722
  3. INVEGA SUSTENNA [Suspect]
     Route: 030
     Dates: start: 20110803
  4. COGENTIN [Concomitant]
     Route: 065
  5. HALDOL [Concomitant]
     Route: 065

REACTIONS (1)
  - DRUG DOSE OMISSION [None]
